FAERS Safety Report 5809179-8 (Version None)
Quarter: 2008Q3

REPORT INFORMATION
  Report Type: 
  Country: None (occurrence: None)
  Receive Date: 20080714
  Receipt Date: 20080702
  Transmission Date: 20090109
  Serious: Yes (Other)
  Sender: FDA-Public Use
  Company Number: CA-PFIZER INC-2008054618

PATIENT
  Age: 29 Year
  Sex: Female

DRUGS (3)
  1. CHANTIX [Suspect]
     Indication: SMOKING CESSATION THERAPY
     Route: 048
     Dates: start: 20080601, end: 20080601
  2. ADVIL [Concomitant]
  3. CLONAZEPAM [Concomitant]

REACTIONS (4)
  - IRRITABILITY [None]
  - NERVOUSNESS [None]
  - PSYCHOTIC DISORDER [None]
  - SELF INJURIOUS BEHAVIOUR [None]
